FAERS Safety Report 7765097-X (Version None)
Quarter: 2011Q3

REPORT INFORMATION
  Report Type: 
  Country: None (occurrence: None)
  Receive Date: 20110916
  Receipt Date: 20110909
  Transmission Date: 20111222
  Serious: Yes (Other)
  Sender: FDA-Public Use
  Company Number: DSA_47589_2011

PATIENT
  Sex: Female
  Weight: 62.1428 kg

DRUGS (4)
  1. XYZAL [Concomitant]
  2. PEPCID [Concomitant]
  3. ELIDEL [Suspect]
     Indication: DERMATITIS ATOPIC
     Dosage: (1 DF 1X TOPICAL)
     Route: 061
     Dates: start: 20110801, end: 20110801
  4. ATARAX [Concomitant]

REACTIONS (5)
  - APPLICATION SITE VESICLES [None]
  - APPLICATION SITE INFLAMMATION [None]
  - APPLICATION SITE SWELLING [None]
  - APPLICATION SITE PAIN [None]
  - APPLICATION SITE PRURITUS [None]
